FAERS Safety Report 8486737-6 (Version None)
Quarter: 2012Q3

REPORT INFORMATION
  Report Type: 
  Country: None (occurrence: None)
  Receive Date: 20120704
  Receipt Date: 20120628
  Transmission Date: 20120928
  Serious: Yes (Other)
  Sender: FDA-Public Use
  Company Number: US-BIOGENIDEC-2012BI021350

PATIENT
  Age: 45 Year
  Sex: Female

DRUGS (7)
  1. LAMICTAL [Concomitant]
  2. CYMBALTA [Concomitant]
  3. FENTANYL-100 [Concomitant]
     Route: 061
  4. OXYCODONE HCL [Concomitant]
  5. VALIUM [Concomitant]
  6. TYSABRI [Suspect]
     Indication: MULTIPLE SCLEROSIS
     Route: 042
     Dates: start: 20110428, end: 20120312
  7. MS CONTIN [Concomitant]

REACTIONS (1)
  - HEPATITIS C [None]
